FAERS Safety Report 9932006 (Version 1)
Quarter: 2014Q1

REPORT INFORMATION
  Report Type: Spontaneous
  Country: US (occurrence: None)
  Receive Date: 20140227
  Receipt Date: 20140227
  Transmission Date: 20141002
  Serious: Yes (Hospitalization)
  Sender: FDA-Public Use
  Company Number: None

PATIENT
  Age: 78 Year
  Sex: Female
  Weight: 95.26 kg

DRUGS (10)
  1. WARFARIN [Suspect]
     Indication: COAGULOPATHY
     Route: 048
     Dates: start: 20140107, end: 20140207
  2. BETOPTIC [Concomitant]
  3. AZOPT [Concomitant]
  4. TRAVATAN [Concomitant]
  5. PACE MAKER [Concomitant]
  6. INHALER FOR ASMATHA [Concomitant]
  7. AMLODIPINE [Concomitant]
  8. METOPROLOL [Concomitant]
  9. ASPIRIN [Concomitant]
  10. OCUVITE [Concomitant]

REACTIONS (4)
  - Abdominal pain upper [None]
  - Diarrhoea [None]
  - Dizziness [None]
  - Dizziness [None]
